FAERS Safety Report 7029197-4 (Version None)
Quarter: 2010Q3

REPORT INFORMATION
  Report Type: 
  Country: None (occurrence: None)
  Receive Date: 20100930
  Receipt Date: 20100918
  Transmission Date: 20110219
  Serious: Yes (Hospitalization, Other)
  Sender: FDA-Public Use
  Company Number: 2010AP002032

PATIENT
  Age: 48 Year
  Sex: Female

DRUGS (8)
  1. CLONAZEPAM [Suspect]
     Indication: MYOCLONUS
     Dosage: 0.25 MG;BID
  2. EPOGEN [Concomitant]
  3. FELODIPINE [Concomitant]
  4. ALUMINUM HYDROXIDE GEL [Concomitant]
  5. CALCIUM CARBONATE [Concomitant]
  6. LABETALOL HCL [Concomitant]
  7. FOLIC ACID [Concomitant]
  8. VITAMIN B COMPLEX CAP [Concomitant]

REACTIONS (3)
  - CHILLS [None]
  - PANCYTOPENIA [None]
  - PYREXIA [None]
